FAERS Safety Report 9922272 (Version 3)
Quarter: 2014Q2

REPORT INFORMATION
  Report Type: Spontaneous
  Country: US (occurrence: US)
  Receive Date: 20140225
  Receipt Date: 20140401
  Transmission Date: 20141212
  Serious: Yes (Other)
  Sender: FDA-Public Use
  Company Number: US-FRI-1000054261

PATIENT
  Age: 81 Year
  Sex: Female

DRUGS (6)
  1. FETZIMA [Suspect]
     Indication: DEPRESSION
     Dosage: 20 MG
     Dates: start: 201402, end: 201402
  2. FETZIMA [Suspect]
     Indication: DEPRESSION
     Dosage: 40 MG
     Dates: start: 201402, end: 20140216
  3. WARFARIN [Concomitant]
     Indication: ATRIAL FIBRILLATION
  4. FLECAINIDE [Concomitant]
     Indication: ATRIAL FIBRILLATION
  5. COMBIGAN [Concomitant]
     Indication: GLAUCOMA
  6. TRAVATAN [Concomitant]
     Indication: GLAUCOMA

REACTIONS (4)
  - Eye haemorrhage [Recovered/Resolved]
  - Hyperhidrosis [Recovered/Resolved]
  - Therapeutic response changed [Unknown]
  - Constipation [Recovered/Resolved]
